FAERS Safety Report 4766919-7 (Version None)
Quarter: 2005Q3

REPORT INFORMATION
  Report Type: 
  Country: None (occurrence: None)
  Receive Date: 20050913
  Receipt Date: 20050714
  Transmission Date: 20060218
  Serious: Yes (Hospitalization)
  Sender: FDA-Public Use
  Company Number: JP-BOEHRINGER INGELHEIM PHARMACEUTICALS, INC.-2005-BP-11894NB

PATIENT
  Sex: Male
  Weight: 82.6 kg

DRUGS (3)
  1. MICARDIS [Suspect]
     Indication: HYPERTENSION
     Route: 048
     Dates: start: 20050523, end: 20050704
  2. CARDENALIN [Suspect]
     Route: 048
     Dates: start: 20050620, end: 20050704
  3. ALLOPURINOL [Concomitant]
     Route: 048
     Dates: start: 20010101, end: 20050704

REACTIONS (4)
  - ABDOMINAL DISTENSION [None]
  - C-REACTIVE PROTEIN INCREASED [None]
  - HEPATIC ENZYME INCREASED [None]
  - THROMBOCYTOPENIA [None]
